FAERS Safety Report 9779628 (Version 5)
Quarter: 2014Q1

REPORT INFORMATION
  Report Type: Report from Study
  Country: KR (occurrence: KR)
  Receive Date: 20131223
  Receipt Date: 20140124
  Transmission Date: 20141002
  Serious: Yes (Hospitalization)
  Sender: FDA-Public Use
  Company Number: PHHY2013KR060001

PATIENT
  Age: 53 Year
  Sex: Female
  Weight: 58 kg

DRUGS (6)
  1. AMN107 [Suspect]
     Indication: CHRONIC MYELOID LEUKAEMIA
     Dosage: 600 MG, PER DAY
     Route: 048
     Dates: start: 20120905, end: 20121115
  2. AMN107 [Suspect]
     Dosage: 300 MG, PER DAY
     Route: 048
     Dates: start: 20121116, end: 20121116
  3. AMN107 [Suspect]
     Dosage: 600 MG, PER DAY
     Route: 048
     Dates: start: 20121117
  4. ZOLPIDEM [Concomitant]
     Indication: INSOMNIA
     Dosage: 6.25 MG
     Route: 048
     Dates: start: 20121112, end: 20121120
  5. ESCITALOPRAM [Concomitant]
     Indication: DEPRESSION
     Dosage: 10 MG
     Route: 048
     Dates: start: 20121101, end: 20130510
  6. BUPROPION [Concomitant]
     Indication: DEPRESSION
     Dosage: 150 MG
     Route: 048
     Dates: start: 20121108, end: 20130510

REACTIONS (3)
  - Palpitations [Unknown]
  - Atrial fibrillation [Recovered/Resolved]
  - Hyperthyroidism [Recovered/Resolved]
